FAERS Safety Report 18712459 (Version 1)
Quarter: 2021Q1

REPORT INFORMATION
  Report Type: Spontaneous
  Country: JP (occurrence: JP)
  Receive Date: 20210107
  Receipt Date: 20210107
  Transmission Date: 20210419
  Serious: Yes (Other)
  Sender: FDA-Public Use
  Company Number: JP-LUPIN PHARMACEUTICALS INC.-2020-11540

PATIENT
  Age: 46 Year
  Sex: Male

DRUGS (13)
  1. AZITHROMYCIN ANHYDROUS. [Suspect]
     Active Substance: AZITHROMYCIN ANHYDROUS
     Indication: COVID-19
  2. PROPOFOL. [Concomitant]
     Active Substance: PROPOFOL
     Indication: PRODUCT USED FOR UNKNOWN INDICATION
     Dosage: UNK
     Route: 065
  3. FAVIPIRAVIR [Suspect]
     Active Substance: FAVIPIRAVIR
     Indication: COVID-19
     Dosage: 800 MILLIGRAM, BID FOR SUBSEQUENT 9 DAYS
     Route: 065
  4. MIDAZOLAM. [Concomitant]
     Active Substance: MIDAZOLAM
     Indication: SEDATIVE THERAPY
     Dosage: UNK
     Route: 065
  5. DEXMEDETOMIDINE. [Concomitant]
     Active Substance: DEXMEDETOMIDINE
     Indication: PRODUCT USED FOR UNKNOWN INDICATION
     Dosage: UNK
     Route: 065
  6. CEFTRIAXONE. [Suspect]
     Active Substance: CEFTRIAXONE
     Indication: COVID-19
  7. FAVIPIRAVIR [Suspect]
     Active Substance: FAVIPIRAVIR
     Indication: ACUTE RESPIRATORY DISTRESS SYNDROME
     Dosage: 1800 MILLIGRAM, BID FOR FIRST DAY
     Route: 065
  8. FENTANYL. [Concomitant]
     Active Substance: FENTANYL
     Indication: PRODUCT USED FOR UNKNOWN INDICATION
     Dosage: UNK (STOPPED)
     Route: 065
  9. METHYLPREDNISOLONE. [Suspect]
     Active Substance: METHYLPREDNISOLONE
     Indication: ACUTE RESPIRATORY DISTRESS SYNDROME
     Dosage: 1 GRAM, QD
     Route: 065
  10. METHYLPREDNISOLONE. [Suspect]
     Active Substance: METHYLPREDNISOLONE
     Indication: COVID-19
  11. CEFTRIAXONE. [Suspect]
     Active Substance: CEFTRIAXONE
     Indication: ACUTE RESPIRATORY DISTRESS SYNDROME
     Dosage: 2 GRAM, QD
     Route: 065
  12. ROCURONIUM BROMIDE. [Concomitant]
     Active Substance: ROCURONIUM BROMIDE
     Indication: PRODUCT USED FOR UNKNOWN INDICATION
     Dosage: UNK
     Route: 065
  13. AZITHROMYCIN ANHYDROUS. [Suspect]
     Active Substance: AZITHROMYCIN ANHYDROUS
     Indication: ACUTE RESPIRATORY DISTRESS SYNDROME
     Dosage: 500 MILLIGRAM, QD
     Route: 065

REACTIONS (1)
  - Off label use [Unknown]
